FAERS Safety Report 10309497 (Version 1)
Quarter: 2014Q3

REPORT INFORMATION
  Report Type: Report from Study
  Country: DE (occurrence: DE)
  Receive Date: 20140717
  Receipt Date: 20140717
  Transmission Date: 20150326
  Serious: Yes (Death, Other)
  Sender: FDA-Public Use
  Company Number: DE-ROCHE-1433579

PATIENT

DRUGS (1)
  1. TRASTUZUMAB [Suspect]
     Active Substance: TRASTUZUMAB
     Indication: BREAST CANCER METASTATIC
     Route: 042

REACTIONS (8)
  - Hypersensitivity [Unknown]
  - Death [Fatal]
  - Ejection fraction decreased [Unknown]
  - Cardiac failure [Unknown]
  - Influenza like illness [Unknown]
  - Drug intolerance [Unknown]
  - Disease progression [Unknown]
  - Pyrexia [Unknown]
